FAERS Safety Report 9684282 (Version 1)
Quarter: 2013Q4

REPORT INFORMATION
  Report Type: Spontaneous
  Country: BR (occurrence: BR)
  Receive Date: 20131112
  Receipt Date: 20131112
  Transmission Date: 20140711
  Serious: Yes (Other)
  Sender: FDA-Public Use
  Company Number: BR-009507513-1311BRA003208

PATIENT
  Sex: Female

DRUGS (17)
  1. VYTORIN [Suspect]
     Route: 048
  2. SIMVASTATIN [Suspect]
     Route: 048
  3. SUSTRATE [Concomitant]
  4. VASTAREL [Concomitant]
  5. ARADOIS [Concomitant]
  6. AMLODIPINE BESYLATE [Concomitant]
  7. ROSUVASTATIN CALCIUM [Concomitant]
  8. CLOPIN [Concomitant]
  9. ATENOLOL [Concomitant]
  10. SPIRONOLACTONE [Concomitant]
  11. GLIMERID [Concomitant]
  12. OMEPRAZOLE [Concomitant]
  13. SOMALGIN [Concomitant]
  14. ASPIRINA PREVENT [Concomitant]
  15. RIVOTRIL [Concomitant]
  16. VENLAFAXINE HYDROCHLORIDE [Concomitant]
  17. RIVOTRIL [Concomitant]

REACTIONS (4)
  - Cardiac operation [Unknown]
  - Angioplasty [Unknown]
  - Angioplasty [Unknown]
  - Angioplasty [Unknown]
